FAERS Safety Report 7642120-4 (Version None)
Quarter: 2011Q3

REPORT INFORMATION
  Report Type: 
  Country: None (occurrence: None)
  Receive Date: 20110728
  Receipt Date: 20110718
  Transmission Date: 20111222
  Serious: Yes (Death, Other)
  Sender: FDA-Public Use
  Company Number: ES-BRISTOL-MYERS SQUIBB COMPANY-15927999

PATIENT
  Age: 77 Year
  Sex: Female
  Weight: 87 kg

DRUGS (5)
  1. INSULATARD FLEXPEN [Concomitant]
     Indication: TYPE 2 DIABETES MELLITUS
     Dosage: 1 DF= 100IU/ML
  2. OMEPRAZOLE [Concomitant]
  3. HYDROXYAPATITE [Concomitant]
     Dosage: FILM COATED TABS
  4. ATACAND [Concomitant]
     Indication: HYPERTENSION
     Dosage: TABS
  5. METFORMIN HCL [Suspect]
     Indication: TYPE 2 DIABETES MELLITUS
     Dosage: FILM COATED TABS
     Route: 065
     Dates: start: 20090101, end: 20110621

REACTIONS (2)
  - LACTIC ACIDOSIS [None]
  - CARDIO-RESPIRATORY ARREST [None]
